FAERS Safety Report 7346057-X (Version None)
Quarter: 2011Q1

REPORT INFORMATION
  Report Type: 
  Country: None (occurrence: None)
  Receive Date: 20110311
  Receipt Date: 20110303
  Transmission Date: 20110831
  Serious: No
  Sender: FDA-Public Use
  Company Number: US-BIOGENIDEC-2011BI008454

PATIENT
  Age: 26 Year
  Sex: Female

DRUGS (1)
  1. AVONEX [Suspect]
     Indication: MULTIPLE SCLEROSIS
     Route: 030
     Dates: start: 20110111

REACTIONS (10)
  - DIZZINESS [None]
  - NEPHROLITHIASIS [None]
  - CYSTITIS [None]
  - VOMITING [None]
  - NAUSEA [None]
  - MULTIPLE SCLEROSIS RELAPSE [None]
  - FALL [None]
  - WEIGHT DECREASED [None]
  - JOINT SPRAIN [None]
  - INJECTION SITE PAIN [None]
